FAERS Safety Report 20376250 (Version 5)
Quarter: 2022Q4

REPORT INFORMATION
  Report Type: Spontaneous
  Country: JP (occurrence: JP)
  Receive Date: 20220125
  Receipt Date: 20221212
  Transmission Date: 20230113
  Serious: Yes (Hospitalization, Other)
  Sender: FDA-Public Use
  Company Number: JP-ONO-2022JP001653

PATIENT
  Age: 25 Year
  Sex: Female
  Weight: 51 kg

DRUGS (19)
  1. BRAFTOVI [Suspect]
     Active Substance: ENCORAFENIB
     Indication: Malignant melanoma
     Dosage: UNK
     Route: 048
     Dates: start: 20201202, end: 20201212
  2. BRAFTOVI [Suspect]
     Active Substance: ENCORAFENIB
     Dosage: UNK
     Route: 048
     Dates: start: 20201222, end: 202103
  3. BRAFTOVI [Suspect]
     Active Substance: ENCORAFENIB
     Dosage: 450 MG, EVERYDAY
     Route: 048
     Dates: start: 20210624, end: 20210704
  4. BRAFTOVI [Suspect]
     Active Substance: ENCORAFENIB
     Dosage: 300 MG, EVERYDAY
     Route: 048
     Dates: start: 20210719, end: 20210727
  5. MEKTOVI [Suspect]
     Active Substance: BINIMETINIB
     Indication: Malignant melanoma
     Dosage: UNK
     Route: 048
     Dates: start: 20201202, end: 20201212
  6. MEKTOVI [Suspect]
     Active Substance: BINIMETINIB
     Dosage: UNK
     Route: 048
     Dates: start: 20201222, end: 202103
  7. MEKTOVI [Suspect]
     Active Substance: BINIMETINIB
     Dosage: 45 MG, Q12H
     Route: 048
     Dates: start: 20210624, end: 20210704
  8. MEKTOVI [Suspect]
     Active Substance: BINIMETINIB
     Dosage: 30 MG, Q12H
     Route: 048
     Dates: start: 20210719, end: 20210727
  9. OPDIVO [Suspect]
     Active Substance: NIVOLUMAB
     Indication: Malignant melanoma
     Dosage: UNK
     Route: 041
  10. YERVOY [Suspect]
     Active Substance: IPILIMUMAB
     Indication: Malignant melanoma
     Dosage: UNK
     Route: 041
  11. KEYTRUDA [Concomitant]
     Active Substance: PEMBROLIZUMAB
     Indication: Malignant melanoma
     Dosage: 200 MG
     Route: 065
     Dates: start: 20210331, end: 20210602
  12. DABRAFENIB MESYLATE [Concomitant]
     Active Substance: DABRAFENIB MESYLATE
     Indication: Malignant melanoma
     Dosage: UNK ORAL DRUG UNSPECIFIED FORM
     Route: 048
     Dates: start: 201811, end: 2019
  13. DABRAFENIB MESYLATE [Concomitant]
     Active Substance: DABRAFENIB MESYLATE
     Dosage: UNK ORAL DRUG UNSPECIFIED FORM
     Route: 048
  14. DABRAFENIB MESYLATE [Concomitant]
     Active Substance: DABRAFENIB MESYLATE
     Dosage: UNK ORAL DRUG UNSPECIFIED FORM
     Route: 048
  15. TRAMETINIB DIMETHYL SULFOXIDE [Concomitant]
     Active Substance: TRAMETINIB DIMETHYL SULFOXIDE
     Indication: Malignant melanoma
     Dosage: UNK ORAL DRUG UNSPECIFIED FORM
     Route: 048
     Dates: start: 201811, end: 2019
  16. TRAMETINIB DIMETHYL SULFOXIDE [Concomitant]
     Active Substance: TRAMETINIB DIMETHYL SULFOXIDE
     Dosage: UNK ORAL DRUG UNSPECIFIED FORM
     Route: 048
  17. TRAMETINIB DIMETHYL SULFOXIDE [Concomitant]
     Active Substance: TRAMETINIB DIMETHYL SULFOXIDE
     Dosage: UNK ORAL DRUG UNSPECIFIED FORM
     Route: 048
  18. MEKINIST [Concomitant]
     Active Substance: TRAMETINIB DIMETHYL SULFOXIDE
     Indication: Malignant melanoma
     Dosage: UNK
     Route: 065
  19. TAFINLAR [Concomitant]
     Active Substance: DABRAFENIB MESYLATE
     Indication: Malignant melanoma
     Dosage: UNK
     Route: 065

REACTIONS (16)
  - Pyrexia [Recovering/Resolving]
  - Serous retinal detachment [Recovered/Resolved]
  - Chorioretinitis [Recovered/Resolved]
  - Iridocyclitis [Recovered/Resolved]
  - Uveitis [Recovered/Resolved]
  - Enteritis infectious [Unknown]
  - Cholecystitis [Unknown]
  - Alopecia [Recovering/Resolving]
  - Pyrexia [Recovering/Resolving]
  - Pyrexia [Recovering/Resolving]
  - Liver disorder [Unknown]
  - Vision blurred [Recovered/Resolved]
  - Abdominal discomfort [Unknown]
  - Malaise [Unknown]
  - Vomiting [Recovering/Resolving]
  - Diarrhoea [Unknown]

NARRATIVE: CASE EVENT DATE: 20201202
